FAERS Safety Report 6636486-1 (Version None)
Quarter: 2010Q1

REPORT INFORMATION
  Report Type: 
  Country: None (occurrence: None)
  Receive Date: 20100311
  Receipt Date: 20100225
  Transmission Date: 20100710
  Serious: Yes (Hospitalization)
  Sender: FDA-Public Use
  Company Number: 1000011528

PATIENT
  Age: 27 Year
  Sex: Male

DRUGS (5)
  1. ESCITALOPRAM OXALATE [Suspect]
     Dosage: 20 MG (20 MG, 1 IN 1 D), ORAL
     Route: 048
     Dates: start: 20060705
  2. SOLIAN [Suspect]
     Dosage: 200 MG (200 MG, 1 IN 1 D), ORAL 300 MG (300 MG, 1 IN 1 D), ORAL 400 MG (400 MG, 1 IN 1 D), ORAL
     Route: 048
     Dates: start: 20060906, end: 20060918
  3. SOLIAN [Suspect]
     Dosage: 200 MG (200 MG, 1 IN 1 D), ORAL 300 MG (300 MG, 1 IN 1 D), ORAL 400 MG (400 MG, 1 IN 1 D), ORAL
     Route: 048
     Dates: start: 20060919, end: 20061006
  4. SOLIAN [Suspect]
     Dosage: 200 MG (200 MG, 1 IN 1 D), ORAL 300 MG (300 MG, 1 IN 1 D), ORAL 400 MG (400 MG, 1 IN 1 D), ORAL
     Route: 048
     Dates: start: 20061007
  5. QUILONUM [Concomitant]

REACTIONS (4)
  - BLOOD PROLACTIN INCREASED [None]
  - DRUG INTERACTION [None]
  - ERECTILE DYSFUNCTION [None]
  - LOSS OF LIBIDO [None]
